FAERS Safety Report 19322113 (Version 3)
Quarter: 2021Q2

REPORT INFORMATION
  Report Type: Report from Study
  Country: CA (occurrence: CA)
  Receive Date: 20210528
  Receipt Date: 20210625
  Transmission Date: 20210717
  Serious: Yes (Other)
  Sender: FDA-Public Use
  Company Number: CA-REGENERON PHARMACEUTICALS, INC.-2021-53096

PATIENT

DRUGS (1)
  1. EYLEA [Suspect]
     Active Substance: AFLIBERCEPT
     Indication: DIABETIC RETINAL OEDEMA
     Dosage: UNK, LEFT EYE; TOTAL OF 1 DOSE ADMINISTERED; LAST DOSE ADMINISTERED
     Dates: start: 20210518

REACTIONS (2)
  - Eye haemorrhage [Not Recovered/Not Resolved]
  - Eyelid pain [Not Recovered/Not Resolved]

NARRATIVE: CASE EVENT DATE: 20210518
